FAERS Safety Report 7200750-8 (Version None)
Quarter: 2010Q4

REPORT INFORMATION
  Report Type: 
  Country: None (occurrence: None)
  Receive Date: 20101228
  Receipt Date: 20101220
  Transmission Date: 20110411
  Serious: Yes (Life-Threatening, Hospitalization, Other)
  Sender: FDA-Public Use
  Company Number: DE-GENZYME-POMP-1001145

PATIENT
  Sex: Female
  Weight: 7 kg

DRUGS (1)
  1. MYOZYME [Suspect]
     Indication: GLYCOGEN STORAGE DISEASE TYPE II
     Dosage: 150 MG, UNK
     Route: 042
     Dates: start: 20100505

REACTIONS (3)
  - CARDIAC FAILURE [None]
  - DRUG INEFFECTIVE [None]
  - MUSCLE DISORDER [None]
